FAERS Safety Report 24980071 (Version 2)
Quarter: 2025Q2

REPORT INFORMATION
  Report Type: Spontaneous
  Country: GB (occurrence: GB)
  Receive Date: 20250218
  Receipt Date: 20250530
  Transmission Date: 20250716
  Serious: Yes (Hospitalization, Disabling, Other)
  Sender: SANOFI AVENTIS
  Company Number: GB-SA-2025SA043380

PATIENT
  Sex: Female

DRUGS (1)
  1. AUBAGIO [Suspect]
     Active Substance: TERIFLUNOMIDE
     Indication: Multiple sclerosis
     Dosage: 14 MG, QD
     Route: 048
     Dates: start: 202303

REACTIONS (12)
  - Coma [Unknown]
  - Circulatory collapse [Unknown]
  - Migraine [Unknown]
  - Renal failure [Unknown]
  - Infection [Unknown]
  - Multiple sclerosis relapse [Unknown]
  - Fall [Unknown]
  - Balance disorder [Unknown]
  - Sensory loss [Unknown]
  - Sepsis [Unknown]
  - Hypokinesia [Unknown]
  - Hypoaesthesia [Unknown]

NARRATIVE: CASE EVENT DATE: 20240101
